FAERS Safety Report 5245590-4 (Version None)
Quarter: 2007Q1

REPORT INFORMATION
  Report Type: 
  Country: None (occurrence: None)
  Receive Date: 20070216
  Receipt Date: 20070201
  Transmission Date: 20070707
  Serious: Yes (Hospitalization)
  Sender: FDA-Public Use
  Company Number: CERZ-11493

PATIENT
  Age: 55 Year
  Sex: Female
  Weight: 66.7 kg

DRUGS (8)
  1. CEREZYME [Suspect]
     Indication: GAUCHER'S DISEASE
     Dosage: 4000 UNITS Q2WKS IV
     Route: 042
     Dates: start: 19941204
  2. BUSPAR [Concomitant]
  3. PROZAC [Concomitant]
  4. FOLIC ACID [Concomitant]
  5. NEURONTIN [Concomitant]
  6. SYNTHROID [Concomitant]
  7. FRAGMIN [Concomitant]
  8. ASPIRIN [Concomitant]

REACTIONS (25)
  - ABSCESS [None]
  - ANAEMIA [None]
  - ARTHRITIS INFECTIVE [None]
  - ASTHENIA [None]
  - BACK PAIN [None]
  - DEEP VEIN THROMBOSIS [None]
  - DEHYDRATION [None]
  - DISLOCATION OF JOINT PROSTHESIS [None]
  - FAILURE OF IMPLANT [None]
  - FLANK PAIN [None]
  - HIP FRACTURE [None]
  - HYPERCOAGULATION [None]
  - LYMPHADENOPATHY MEDIASTINAL [None]
  - PAIN [None]
  - PEPTIC ULCER HAEMORRHAGE [None]
  - PULMONARY EMBOLISM [None]
  - RESPIRATORY DISORDER [None]
  - SEPSIS [None]
  - SEPTIC EMBOLUS [None]
  - SERRATIA INFECTION [None]
  - SPINAL DISORDER [None]
  - SURGICAL PROCEDURE REPEATED [None]
  - SYNOVIAL CYST [None]
  - THROMBOCYTHAEMIA [None]
  - WOUND INFECTION [None]
